FAERS Safety Report 4758779-5 (Version None)
Quarter: 2005Q3

REPORT INFORMATION
  Report Type: 
  Country: None (occurrence: None)
  Receive Date: 20050826
  Receipt Date: 20050816
  Transmission Date: 20060218
  Serious: Yes (Death)
  Sender: FDA-Public Use
  Company Number: 2005089820

PATIENT
  Age: 11 Year
  Sex: Male
  Weight: 49.8957 kg

DRUGS (1)
  1. ZOLOFT [Suspect]
     Indication: DEPRESSION
     Dosage: 75 MG (75 MG , 1 IN 1 D), ORAL
     Route: 048
     Dates: start: 20040505, end: 20050427

REACTIONS (3)
  - ACCIDENT [None]
  - ASPHYXIA [None]
  - COMPLETED SUICIDE [None]
